FAERS Safety Report 13500721 (Version 1)
Quarter: 2017Q2

REPORT INFORMATION
  Report Type: Spontaneous
  Country: US (occurrence: US)
  Receive Date: 20170501
  Receipt Date: 20170501
  Transmission Date: 20170830
  Serious: No
  Sender: FDA-Public Use
  Company Number: US-MAYNE PHARMA-2016MYN000400

PATIENT
  Sex: Female
  Weight: 78 kg

DRUGS (4)
  1. LIOTHYRONINE [Suspect]
     Active Substance: LIOTHYRONINE
     Dosage: UNK
     Route: 048
     Dates: start: 201604, end: 2016
  2. SYNTHROID [Concomitant]
     Active Substance: LEVOTHYROXINE SODIUM
     Indication: AUTOIMMUNE THYROIDITIS
     Dosage: UNK
     Dates: end: 2016
  3. LIOTHYRONINE [Suspect]
     Active Substance: LIOTHYRONINE
     Dosage: 5 MCG, QD
     Route: 048
     Dates: start: 2016
  4. LIOTHYRONINE [Suspect]
     Active Substance: LIOTHYRONINE
     Indication: AUTOIMMUNE THYROIDITIS
     Dosage: 10 MCG EVERY MORNING, 10 MCG EVERY AFTERNOON, 5 MCG EVERY EVENING
     Route: 048
     Dates: start: 2014, end: 201604

REACTIONS (6)
  - Gastritis [Not Recovered/Not Resolved]
  - Abdominal pain upper [Not Recovered/Not Resolved]
  - Nausea [Not Recovered/Not Resolved]
  - Gastrooesophageal reflux disease [Not Recovered/Not Resolved]
  - Oesophagitis [Not Recovered/Not Resolved]
  - Hyperthyroidism [Unknown]

NARRATIVE: CASE EVENT DATE: 2014
